FAERS Safety Report 5378038-X (Version None)
Quarter: 2007Q2

REPORT INFORMATION
  Report Type: 
  Country: None (occurrence: None)
  Receive Date: 20070629
  Receipt Date: 20070613
  Transmission Date: 20071010
  Serious: Yes (Hospitalization)
  Sender: FDA-Public Use
  Company Number: SPI200700407

PATIENT
  Age: 58 Year
  Sex: Male

DRUGS (2)
  1. AMITIZA [Suspect]
     Dosage: 24 MCG
  2. MULTIPLE UNSPECIFIED MEDICATIONS [Concomitant]

REACTIONS (2)
  - DEHYDRATION [None]
  - SWELLING FACE [None]
